FAERS Safety Report 9192622 (Version 1)
Quarter: 2013Q1

REPORT INFORMATION
  Report Type: Spontaneous
  Country: CH (occurrence: CH)
  Receive Date: 20130327
  Receipt Date: 20130327
  Transmission Date: 20140127
  Serious: Yes (Hospitalization, Other)
  Sender: FDA-Public Use
  Company Number: CH-ELI_LILLY_AND_COMPANY-CH201303008513

PATIENT
  Age: 40 Year
  Sex: Male

DRUGS (1)
  1. ZYPREXA VELOTAB [Suspect]
     Indication: SCHIZOPHRENIA, PARANOID TYPE
     Dosage: 1 DF, UNKNOWN

REACTIONS (1)
  - Aggression [Recovering/Resolving]
